FAERS Safety Report 4838209-5 (Version None)
Quarter: 2005Q4

REPORT INFORMATION
  Report Type: 
  Country: None (occurrence: None)
  Receive Date: 20051123
  Receipt Date: 20051108
  Transmission Date: 20060501
  Serious: Yes (Death, Hospitalization)
  Sender: FDA-Public Use
  Company Number: 2005-02197

PATIENT
  Age: 62 Year
  Sex: Male

DRUGS (9)
  1. VELCADE [Suspect]
     Indication: MULTIPLE MYELOMA
     Dosage: 1.60 MG, 2/WEEK, INTRAVENOUS
     Route: 042
     Dates: start: 20050412, end: 20050422
  2. DEXAMETHASONE [Suspect]
     Indication: MULTIPLE MYELOMA
     Dosage: 39.00 MG, ORAL
     Route: 048
     Dates: start: 20050412, end: 20050423
  3. STILNOCT (ZOLPIDEM TARTRATE) [Concomitant]
  4. CITALOPRAM HYDROBROMIDE [Concomitant]
  5. FRAGMIN [Concomitant]
  6. ALVEDON (PARACETAMOL) [Concomitant]
  7. SODIUM BICARBONATE IN PLASTIC CONTAINER [Concomitant]
  8. DEXOFEN (DEXTROPROPOXYPHENE NAPSILATE) [Concomitant]
  9. PANTOPRAZOLE SODIUM [Concomitant]

REACTIONS (5)
  - DIVERTICULAR PERFORATION [None]
  - EMBOLISM [None]
  - LARGE INTESTINAL ULCER HAEMORRHAGE [None]
  - POST PROCEDURAL COMPLICATION [None]
  - POST PROCEDURAL HAEMORRHAGE [None]
